FAERS Safety Report 5268076-X (Version None)
Quarter: 2007Q1

REPORT INFORMATION
  Report Type: 
  Country: None (occurrence: None)
  Receive Date: 20070319
  Receipt Date: 20070306
  Transmission Date: 20070707
  Serious: Yes (Hospitalization)
  Sender: FDA-Public Use
  Company Number: CA-ELI_LILLY_AND_COMPANY-CA200703001267

PATIENT
  Sex: Male

DRUGS (7)
  1. ZYPREXA ZYDIS [Suspect]
     Indication: SCHIZOPHRENIA
     Dosage: 30 MG, DAILY (1/D)
     Dates: start: 20060101
  2. ZYPREXA ZYDIS [Suspect]
     Dosage: 20 MG, DAILY (1/D)
     Route: 048
  3. VALPROIC ACID [Concomitant]
     Dosage: 1500 MG, DAILY (1/D)
  4. VALPROIC ACID [Concomitant]
     Dosage: 500 MG, 3/D
  5. CHLORPROMAZINE [Concomitant]
     Indication: SLEEP DISORDER
     Dosage: 75 MG, UNK
  6. CLONAZEPAM [Concomitant]
     Indication: SLEEP DISORDER
  7. ZOPICLONE [Concomitant]
     Indication: SLEEP DISORDER

REACTIONS (9)
  - ANORGASMIA [None]
  - DIARRHOEA [None]
  - EJACULATION FAILURE [None]
  - FEELING HOT [None]
  - HYPERHIDROSIS [None]
  - PHOTOSENSITIVITY REACTION [None]
  - PRESCRIBED OVERDOSE [None]
  - REFUSAL OF TREATMENT BY PATIENT [None]
  - WEIGHT INCREASED [None]
